FAERS Safety Report 7018725-0 (Version None)
Quarter: 2010Q3

REPORT INFORMATION
  Report Type: 
  Country: None (occurrence: None)
  Receive Date: 20100928
  Receipt Date: 20100924
  Transmission Date: 20110219
  Serious: Yes (Hospitalization)
  Sender: FDA-Public Use
  Company Number: FR-BRISTOL-MYERS SQUIBB COMPANY-15302813

PATIENT
  Age: 25 Year
  Sex: Male

DRUGS (1)
  1. ABILIFY [Suspect]

REACTIONS (1)
  - PSYCHOTIC DISORDER [None]
